FAERS Safety Report 15116484 (Version 2)
Quarter: 2018Q3

REPORT INFORMATION
  Report Type: Spontaneous
  Country: LB (occurrence: LB)
  Receive Date: 20180706
  Receipt Date: 20180724
  Transmission Date: 20181010
  Serious: Yes (Hospitalization, Other)
  Sender: FDA-Public Use
  Company Number: LB-TOLMAR, INC.-2018LB006911

PATIENT

DRUGS (9)
  1. ZYTIGA [Concomitant]
     Active Substance: ABIRATERONE ACETATE
     Dosage: UNK
     Dates: start: 2018
  2. ONE ALPHA [Concomitant]
     Active Substance: ALFACALCIDOL
  3. MALTOFER                           /00023548/ [Concomitant]
  4. GLUCOPHAGE [Concomitant]
     Active Substance: METFORMIN HYDROCHLORIDE
  5. HUMAX [Concomitant]
     Indication: PRODUCT USED FOR UNKNOWN INDICATION
     Dosage: 1000 UNKNOWN UNITS, 6 TIMES, MONTHLY
  6. ZOMETA [Concomitant]
     Active Substance: ZOLEDRONIC ACID
     Dosage: UNK
     Dates: start: 2013
  7. JANUVIA [Concomitant]
     Active Substance: SITAGLIPTIN PHOSPHATE
  8. ELIGARD [Suspect]
     Active Substance: LEUPROLIDE ACETATE
     Indication: PROSTATE CANCER
     Dosage: 1 DF, EVERY 3 MONTHS
     Route: 042
     Dates: start: 2013
  9. LIPONORM                           /00001301/ [Concomitant]
     Active Substance: CLOFIBRATE

REACTIONS (5)
  - Incorrect route of drug administration [Unknown]
  - Blood urine present [Recovered/Resolved]
  - Prostatic disorder [Recovered/Resolved]
  - Inflammation [Recovered/Resolved]
  - Infection [Recovered/Resolved]

NARRATIVE: CASE EVENT DATE: 2013
